FAERS Safety Report 8090754-8 (Version None)
Quarter: 2012Q1

REPORT INFORMATION
  Report Type: 
  Country: None (occurrence: None)
  Receive Date: 20120125
  Receipt Date: 20120113
  Transmission Date: 20120608
  Serious: Yes (Disabling)
  Sender: FDA-Public Use
  Company Number: 1000008839

PATIENT
  Age: 44 Year
  Sex: Female

DRUGS (2)
  1. ESCITALOPRAM OXALATE [Suspect]
     Indication: DEPRESSION
     Dosage: 10 MG (10 MG, 1 IN 1 D), ORAL
     Route: 048
     Dates: start: 20080101, end: 20090707
  2. TAMOXIFEN CITRATE [Concomitant]

REACTIONS (8)
  - PAIN IN JAW [None]
  - SPEECH DISORDER [None]
  - MASTICATION DISORDER [None]
  - DYSTONIA [None]
  - DYSPHAGIA [None]
  - CONDITION AGGRAVATED [None]
  - TONGUE BITING [None]
  - DYSKINESIA [None]
